FAERS Safety Report 7313582-7 (Version None)
Quarter: 2011Q1

REPORT INFORMATION
  Report Type: 
  Country: None (occurrence: None)
  Receive Date: 20110225
  Receipt Date: 20110217
  Transmission Date: 20110831
  Serious: Yes (Other)
  Sender: FDA-Public Use
  Company Number: US-BRACCO-005559

PATIENT
  Sex: Female
  Weight: 58.05 kg

DRUGS (50)
  1. OPTIMARK [Suspect]
     Indication: NUCLEAR MAGNETIC RESONANCE IMAGING
  2. ALL OTHER THERAPEUTIC PRODUCTS [Concomitant]
  3. CONTRAST MEDIA [Suspect]
     Indication: NUCLEAR MAGNETIC RESONANCE IMAGING
     Dates: start: 20001221, end: 20001221
  4. COUMADIN [Concomitant]
     Dates: start: 19990101
  5. ZETIA [Concomitant]
  6. ATIVAN [Concomitant]
  7. PROHANCE [Suspect]
     Indication: NUCLEAR MAGNETIC RESONANCE IMAGING
  8. MULTIHANCE [Suspect]
     Indication: NUCLEAR MAGNETIC RESONANCE IMAGING BRAIN
     Route: 042
     Dates: start: 20080111, end: 20080111
  9. CONTRAST MEDIA [Suspect]
     Dates: start: 20000323, end: 20000323
  10. RENAGEL [Concomitant]
     Dates: start: 19990101
  11. AMITRIPTYLINE HCL [Concomitant]
  12. NEPHROCAPS [Concomitant]
     Dates: start: 20090101
  13. CONTRAST MEDIA [Suspect]
     Dates: start: 20000830, end: 20000830
  14. RANITIDINE [Concomitant]
  15. DILANTIN [Concomitant]
  16. OXYCONTIN [Concomitant]
  17. SYNTHROID [Concomitant]
  18. OMNISCAN [Suspect]
     Indication: NUCLEAR MAGNETIC RESONANCE IMAGING BRAIN
     Dates: start: 19980601, end: 19980601
  19. CHLORTHALIDONE [Concomitant]
  20. PAXIL [Concomitant]
  21. MAGNEVIST [Suspect]
     Dosage: 14 AND 16 ML
     Route: 042
     Dates: start: 20051215, end: 20051215
  22. METOPROLOL SUCCINATE [Concomitant]
     Dates: start: 20090101
  23. CONTRAST MEDIA [Suspect]
     Dates: start: 20041203, end: 20041203
  24. CONTRAST MEDIA [Suspect]
     Dates: start: 20020910, end: 20020910
  25. ZOFRAN [Concomitant]
  26. MAGNEVIST [Suspect]
     Route: 042
     Dates: start: 20021230, end: 20021230
  27. MULTIHANCE [Suspect]
     Dosage: 17
     Route: 042
     Dates: start: 20080325, end: 20080325
  28. CONTRAST MEDIA [Suspect]
     Dates: start: 19970718, end: 19970718
  29. CALCITRIOL [Concomitant]
  30. LIPITOR [Concomitant]
  31. MAGNEVIST [Suspect]
     Route: 042
     Dates: start: 20010103, end: 20010103
  32. MAGNEVIST [Suspect]
     Route: 042
     Dates: start: 20061211, end: 20061211
  33. MULTIHANCE [Suspect]
     Indication: NUCLEAR MAGNETIC RESONANCE IMAGING
     Route: 042
     Dates: start: 20080103, end: 20080103
  34. PROCRIT [Concomitant]
     Dates: start: 19990101
  35. CONTRAST MEDIA [Suspect]
     Dates: start: 20061211, end: 20061211
  36. CONTRAST MEDIA [Suspect]
     Route: 042
     Dates: start: 20050629, end: 20050629
  37. CONTRAST MEDIA [Suspect]
     Dates: start: 20010305, end: 20010305
  38. PREDNISONE TAB [Concomitant]
  39. NEURONTIN [Concomitant]
  40. MAGNEVIST [Suspect]
     Indication: NUCLEAR MAGNETIC RESONANCE IMAGING
     Route: 042
     Dates: start: 20020318, end: 20020318
  41. MAGNEVIST [Suspect]
     Route: 042
     Dates: start: 20020326
  42. CONTRAST MEDIA [Suspect]
     Indication: ANGIOGRAM
     Dates: start: 20011108, end: 20011108
  43. CONTRAST MEDIA [Suspect]
     Dates: start: 20080325, end: 20080325
  44. CONTRAST MEDIA [Suspect]
     Dates: start: 20030813, end: 20030813
  45. LASIX [Concomitant]
  46. MAGNEVIST [Suspect]
     Route: 042
     Dates: start: 20040102, end: 20040102
  47. CONTRAST MEDIA [Suspect]
     Indication: HAEMORRHAGE INTRACRANIAL
     Dates: start: 20020423, end: 20020423
  48. CONTRAST MEDIA [Suspect]
     Dates: start: 19990615, end: 19990615
  49. CONTRAST MEDIA [Suspect]
     Dates: start: 19990915, end: 19990915
  50. CLARITIN [Concomitant]

REACTIONS (1)
  - NEPHROGENIC SYSTEMIC FIBROSIS [None]
